FAERS Safety Report 4851011-3 (Version None)
Quarter: 2005Q4

REPORT INFORMATION
  Report Type: 
  Country: None (occurrence: None)
  Receive Date: 20051212
  Receipt Date: 20051205
  Transmission Date: 20060501
  Serious: Yes (Life-Threatening)
  Sender: FDA-Public Use
  Company Number: PHFR2005GB03933

PATIENT
  Age: 74 Year
  Sex: Male
  Weight: 75 kg

DRUGS (5)
  1. RIVASTIGMINE [Suspect]
     Indication: DEMENTIA
     Dosage: 15 MG BID (ONE DOSE ONLY)
     Route: 048
     Dates: start: 20051107
  2. SINEMET [Concomitant]
     Indication: PARKINSONISM
     Dosage: 275 MG, TID
     Route: 048
     Dates: start: 20030101
  3. ENTACAPONE [Concomitant]
     Indication: PARKINSONISM
     Dosage: 200 MG, TID
     Route: 048
     Dates: start: 20040101
  4. NAPROXEN [Concomitant]
     Indication: OSTEOARTHRITIS
     Dosage: 250 MG, TID
     Route: 048
     Dates: start: 20040101
  5. LORAZEPAM [Concomitant]
     Indication: DEMENTIA
     Dosage: 0.5 MG, PRN
     Route: 048
     Dates: start: 20050901

REACTIONS (2)
  - ANGIONEUROTIC OEDEMA [None]
  - URTICARIA [None]
